FAERS Safety Report 25200609 (Version 1)
Quarter: 2025Q2

REPORT INFORMATION
  Report Type: Spontaneous
  Country: TR (occurrence: TR)
  Receive Date: 20250415
  Receipt Date: 20250415
  Transmission Date: 20250716
  Serious: Yes (Other)
  Sender: BAYER
  Company Number: TR-BAYER-2025A049256

PATIENT

DRUGS (1)
  1. FINERENONE [Suspect]
     Active Substance: FINERENONE

REACTIONS (2)
  - Acute kidney injury [None]
  - Infection [None]
